FAERS Safety Report 10703094 (Version 1)
Quarter: 2015Q1

REPORT INFORMATION
  Report Type: Spontaneous
  Country: US (occurrence: US)
  Receive Date: 20150112
  Receipt Date: 20150112
  Transmission Date: 20150721
  Serious: Yes (Hospitalization)
  Sender: FDA-Public Use
  Company Number: US-ROCHE-1518473

PATIENT
  Sex: Female

DRUGS (1)
  1. ACTIVASE [Suspect]
     Active Substance: ALTEPLASE
     Indication: ISCHAEMIC STROKE
     Dosage: 0.9 MG PER KG OF BODY WEIGHT, WITH 10% OF THE TOTAL TO BE GIVEN OVER 1 MINUTE AND THE REMAINDER TO B
     Route: 065

REACTIONS (2)
  - Incorrect drug administration rate [Unknown]
  - Speech disorder [Unknown]
